FAERS Safety Report 18547341 (Version 2)
Quarter: 2021Q3

REPORT INFORMATION
  Report Type: Spontaneous
  Country: US (occurrence: US)
  Receive Date: 20201125
  Receipt Date: 20210823
  Transmission Date: 20211014
  Serious: No
  Sender: FDA-Public Use
  Company Number: US-STRONGBRIDGE BIOPHARMA-2020-STR-000302

PATIENT
  Sex: Male

DRUGS (2)
  1. KEVEYIS [Suspect]
     Active Substance: DICHLORPHENAMIDE
     Indication: FAMILIAL PERIODIC PARALYSIS
     Dosage: 100 MG, BID
     Route: 048
     Dates: start: 20190815
  2. KEVEYIS [Suspect]
     Active Substance: DICHLORPHENAMIDE
     Dosage: 100 MG, BID
     Route: 048

REACTIONS (3)
  - Muscle spasms [Recovering/Resolving]
  - Myalgia [Recovering/Resolving]
  - Pain [Unknown]
